FAERS Safety Report 9364069 (Version 1)
Quarter: 2013Q2

REPORT INFORMATION
  Report Type: Spontaneous
  Country: US (occurrence: US)
  Receive Date: 20130624
  Receipt Date: 20130624
  Transmission Date: 20140414
  Serious: Yes (Hospitalization, Other)
  Sender: FDA-Public Use
  Company Number: US-009507513-1306USA010495

PATIENT
  Sex: Female
  Weight: 92.52 kg

DRUGS (2)
  1. NUVARING [Suspect]
     Indication: CONTRACEPTION
     Dosage: 1 RING 3 WEEKS/1 WEEK NO RING
     Route: 067
     Dates: start: 200702, end: 20080402
  2. NUVARING [Suspect]
     Dosage: 3 WEEKS IN/ 1 WEEK OUT
     Route: 067
     Dates: start: 20091019, end: 201002

REACTIONS (7)
  - Caesarean section [Unknown]
  - Unintended pregnancy [Unknown]
  - Maternal exposure before pregnancy [Unknown]
  - Headache [Unknown]
  - Abdominal pain upper [Unknown]
  - Nausea [Unknown]
  - Visual impairment [Unknown]
